FAERS Safety Report 24051395 (Version 1)
Quarter: 2024Q3

REPORT INFORMATION
  Report Type: Spontaneous
  Country: JP (occurrence: JP)
  Receive Date: 20240704
  Receipt Date: 20240704
  Transmission Date: 20241016
  Serious: Yes (Death, Other)
  Sender: AMGEN
  Company Number: JP-AMGEN-JPNSP2024129051

PATIENT
  Age: 15 Year
  Sex: Male

DRUGS (6)
  1. BLINCYTO [Suspect]
     Active Substance: BLINATUMOMAB
     Indication: Acute lymphocytic leukaemia
     Dosage: 9 MICROGRAM/SQ. METER
     Route: 042
  2. BLINCYTO [Suspect]
     Active Substance: BLINATUMOMAB
     Dosage: 28 MICROGRAM/SQ. METER
     Route: 042
  3. BLINCYTO [Suspect]
     Active Substance: BLINATUMOMAB
     Dosage: 112 MICROGRAM
     Route: 042
  4. BLINCYTO [Suspect]
     Active Substance: BLINATUMOMAB
     Dosage: 84 MICROGRAM
     Route: 042
  5. BLINCYTO [Suspect]
     Active Substance: BLINATUMOMAB
     Dosage: 56 MICROGRAM
     Route: 042
  6. PONATINIB [Concomitant]
     Active Substance: PONATINIB

REACTIONS (5)
  - Death [Fatal]
  - Leukaemic infiltration extramedullary [Unknown]
  - Cytokine release syndrome [Unknown]
  - Hot flush [Unknown]
  - Pruritus [Unknown]
